FAERS Safety Report 25730717 (Version 1)
Quarter: 2025Q3

REPORT INFORMATION
  Report Type: Spontaneous
  Country: US (occurrence: None)
  Receive Date: 20250827
  Receipt Date: 20250827
  Transmission Date: 20251020
  Serious: Yes (Death, Life-Threatening, Hospitalization)
  Sender: FDA-CTU
  Company Number: None

PATIENT
  Age: 55 Year
  Sex: Male

DRUGS (1)
  1. TIRZEPATIDE [Suspect]
     Active Substance: TIRZEPATIDE
     Dosage: FREQUENCY : WEEKLY;?
     Route: 058
     Dates: start: 20250328, end: 20250419

REACTIONS (4)
  - Small intestinal obstruction [None]
  - Vomiting [None]
  - Pneumonia aspiration [None]
  - Acute respiratory failure [None]

NARRATIVE: CASE EVENT DATE: 20250417
